FAERS Safety Report 5006105-9 (Version None)
Quarter: 2006Q2

REPORT INFORMATION
  Report Type: 
  Country: None (occurrence: None)
  Receive Date: 20060518
  Receipt Date: 20040510
  Transmission Date: 20061013
  Serious: Yes (Hospitalization)
  Sender: FDA-Public Use
  Company Number: JP-MERCK-0405USA00642

PATIENT
  Age: 76 Year
  Sex: Male

DRUGS (10)
  1. ZOCOR [Suspect]
     Indication: HYPERLIPIDAEMIA
     Route: 048
     Dates: start: 19970501, end: 20040413
  2. WARFARIN POTASSIUM [Suspect]
     Indication: THROMBOLYSIS
     Route: 048
     Dates: start: 19970501, end: 20040413
  3. ISOSORBIDE DINITRATE [Concomitant]
     Indication: PROPHYLAXIS
     Route: 048
     Dates: start: 19970101
  4. FAMOTIDINE [Suspect]
     Route: 048
     Dates: start: 20020101, end: 20040501
  5. ASPIRIN [Concomitant]
     Route: 048
     Dates: start: 19970201, end: 20040412
  6. OMEPRAL [Suspect]
     Indication: GASTRIC ULCER
     Route: 048
     Dates: start: 20020905, end: 20040413
  7. VASOTEC [Concomitant]
     Indication: MYOCARDIAL INFARCTION
     Route: 048
     Dates: start: 19970201
  8. PERSANTIN [Concomitant]
     Indication: PROPHYLAXIS
     Route: 048
     Dates: start: 19970201
  9. ECABET [Concomitant]
     Indication: GASTRIC ULCER
     Route: 048
     Dates: start: 19970201
  10. GASMOTIN [Suspect]
     Indication: GASTRIC ULCER
     Route: 048
     Dates: start: 20040401

REACTIONS (10)
  - BLOOD CREATINE PHOSPHOKINASE INCREASED [None]
  - DRUG INTERACTION [None]
  - MYOPATHY [None]
  - REFLUX OESOPHAGITIS [None]
  - RENAL CYST [None]
  - RENAL DISORDER [None]
  - RENAL IMPAIRMENT [None]
  - RENAL LIPOMATOSIS [None]
  - RHABDOMYOLYSIS [None]
  - SPINAL OSTEOARTHRITIS [None]
